FAERS Safety Report 22187635 (Version 1)
Quarter: 2023Q2

REPORT INFORMATION
  Report Type: Spontaneous
  Country: DE (occurrence: DE)
  Receive Date: 20230407
  Receipt Date: 20230407
  Transmission Date: 20230722
  Serious: Yes (Other)
  Sender: FDA-Public Use
  Company Number: DE-ALXN-A202214526

PATIENT
  Age: 7 Decade
  Sex: Female
  Weight: 92 kg

DRUGS (11)
  1. BUPRENORPHINE [Suspect]
     Active Substance: BUPRENORPHINE
     Indication: Breakthrough pain
     Dosage: BUPRENORPHINE PATCHES (5UG/H)
     Route: 065
  2. STRENSIQ [Suspect]
     Active Substance: ASFOTASE ALFA
     Indication: Hypophosphatasia
     Dosage: 240 MILLIGRAM, WEEKLY (80 MG, TIW)
     Route: 058
     Dates: start: 201901
  3. .DELTA.9-TETRAHYDROCANNABINOL\CANNABIDIOL\HERBALS [Suspect]
     Active Substance: .DELTA.9-TETRAHYDROCANNABINOL\CANNABIDIOL\HERBALS
     Indication: Breakthrough pain
     Dosage: 0.15 MILLILITER, DAILY (0.15 ML, 2-3 TIMES PER DAY)
     Route: 065
  4. .DELTA.9-TETRAHYDROCANNABINOL\CANNABIDIOL\HERBALS [Suspect]
     Active Substance: .DELTA.9-TETRAHYDROCANNABINOL\CANNABIDIOL\HERBALS
     Dosage: 0.1 MILLILITER, DAILY (0.05 ML, BID)
     Route: 065
  5. .DELTA.9-TETRAHYDROCANNABINOL\CANNABIDIOL\HERBALS [Suspect]
     Active Substance: .DELTA.9-TETRAHYDROCANNABINOL\CANNABIDIOL\HERBALS
     Dosage: 0.3 MILLILITER, DAILY (0.1 ML, TID)
     Route: 065
  6. .DELTA.9-TETRAHYDROCANNABINOL\CANNABIDIOL\HERBALS [Suspect]
     Active Substance: .DELTA.9-TETRAHYDROCANNABINOL\CANNABIDIOL\HERBALS
     Dosage: 0.5 MILLILITER, DAILY (0.5 ML, 2-3 TIMES PER DAY)
     Route: 065
  7. PIRITRAMIDE [Suspect]
     Active Substance: PIRITRAMIDE
     Indication: Breakthrough pain
     Dosage: 15 MILLIGRAM, WEEKLY (0-2 TIMES PER WEEK)
     Route: 058
  8. METAMIZOLE [Suspect]
     Active Substance: METAMIZOLE
     Indication: Product used for unknown indication
     Dosage: UNK
     Route: 065
  9. LEVOTHYROXINE [Concomitant]
     Active Substance: LEVOTHYROXINE
     Indication: Product used for unknown indication
     Dosage: 125 MICROGRAM, DAILY (125 ?G, QD)
     Route: 065
  10. VITAMIN D [Concomitant]
     Active Substance: VITAMIN D NOS
     Indication: Product used for unknown indication
     Dosage: 1000 IE, QD
     Route: 065
  11. BUDESONIDE\FORMOTEROL [Concomitant]
     Active Substance: BUDESONIDE\FORMOTEROL
     Indication: Product used for unknown indication
     Dosage: 160/4.5UG, BID
     Route: 055

REACTIONS (11)
  - Anaphylactic reaction [Unknown]
  - Drug intolerance [Unknown]
  - Constipation [Unknown]
  - Apathy [Unknown]
  - Dissociation [Unknown]
  - Mobility decreased [Recovering/Resolving]
  - Disturbance in attention [Unknown]
  - Breakthrough pain [Recovering/Resolving]
  - Muscular weakness [Not Recovered/Not Resolved]
  - Somnolence [Unknown]
  - Nausea [Unknown]

NARRATIVE: CASE EVENT DATE: 20191101
